FAERS Safety Report 8190099-1 (Version None)
Quarter: 2012Q1

REPORT INFORMATION
  Report Type: 
  Country: None (occurrence: None)
  Receive Date: 20120307
  Receipt Date: 20120307
  Transmission Date: 20120608
  Serious: Yes (Other)
  Sender: FDA-Public Use
  Company Number: None

PATIENT
  Sex: Female
  Weight: 66.678 kg

DRUGS (2)
  1. PEGASYS [Concomitant]
     Indication: HEPATITIS C
     Dosage: 180MCG
     Route: 058
     Dates: start: 20110801, end: 20120119
  2. RIBASPHERE [Suspect]
     Indication: HEPATITIS C
     Dosage: 200.0 MG
     Route: 048
     Dates: start: 20110801, end: 20120119

REACTIONS (2)
  - PREGNANCY [None]
  - MATERNAL EXPOSURE DURING PREGNANCY [None]
